FAERS Safety Report 24214098 (Version 1)
Quarter: 2024Q3

REPORT INFORMATION
  Report Type: Spontaneous
  Country: US (occurrence: None)
  Receive Date: 20240815
  Receipt Date: 20240815
  Transmission Date: 20241017
  Serious: Yes (Hospitalization)
  Sender: Public
  Company Number: None

PATIENT
  Sex: Female

DRUGS (2)
  1. TOBRAMYCIN [Suspect]
     Active Substance: TOBRAMYCIN\TOBRAMYCIN SULFATE
     Indication: Bronchiectasis
     Dosage: 300MG  EVERY 12 HOURS VIA NEBULIZER?
     Route: 050
     Dates: start: 202302
  2. MYCOPHENOLATE MOFETIL [Concomitant]

REACTIONS (3)
  - PCO2 increased [None]
  - Secretion discharge [None]
  - Asthma [None]
